FAERS Safety Report 8286664-3 (Version None)
Quarter: 2012Q2

REPORT INFORMATION
  Report Type: 
  Country: None (occurrence: None)
  Receive Date: 20120416
  Receipt Date: 20120409
  Transmission Date: 20120825
  Serious: No
  Sender: FDA-Public Use
  Company Number: AU-JNJFOC-20120306123

PATIENT
  Sex: Female

DRUGS (3)
  1. SIMPONI [Suspect]
     Indication: RHEUMATOID ARTHRITIS
     Route: 058
     Dates: start: 20111012
  2. SIMPONI [Suspect]
     Route: 058
     Dates: start: 20110320
  3. SIMPONI [Suspect]
     Route: 058
     Dates: start: 20120311

REACTIONS (3)
  - IMMEDIATE POST-INJECTION REACTION [None]
  - INJECTION SITE REACTION [None]
  - URINARY TRACT INFECTION [None]
